FAERS Safety Report 7418057-2 (Version None)
Quarter: 2011Q2

REPORT INFORMATION
  Report Type: 
  Country: None (occurrence: None)
  Receive Date: 20110412
  Receipt Date: 20110412
  Transmission Date: 20111010
  Serious: No
  Sender: FDA-Public Use
  Company Number: None

PATIENT

DRUGS (1)
  1. DIOVAN [Suspect]

REACTIONS (5)
  - PAIN [None]
  - PRURITUS [None]
  - SWELLING [None]
  - MUSCULAR WEAKNESS [None]
  - RASH [None]
